FAERS Safety Report 9424222 (Version 1)
Quarter: 2013Q3

REPORT INFORMATION
  Report Type: Spontaneous
  Country: US (occurrence: US)
  Receive Date: 20130729
  Receipt Date: 20130729
  Transmission Date: 20140515
  Serious: Yes (Other)
  Sender: FDA-Public Use
  Company Number: US-BAYER-2013-089137

PATIENT
  Age: 32 Year
  Sex: Female

DRUGS (1)
  1. MIRENA [Suspect]
     Indication: MENORRHAGIA
     Dosage: 20 MCG/24HR, CONT
     Route: 015
     Dates: start: 200806

REACTIONS (10)
  - Genital haemorrhage [Recovered/Resolved]
  - Amenorrhoea [None]
  - Breast enlargement [None]
  - Abdominal distension [None]
  - Sleep disorder [None]
  - Abnormal weight gain [None]
  - Pregnancy with contraceptive device [None]
  - Abortion spontaneous [None]
  - Drug ineffective [None]
  - Device misuse [None]
